FAERS Safety Report 9818581 (Version 2)
Quarter: 2014Q1

REPORT INFORMATION
  Report Type: Report from Study
  Country: JP (occurrence: JP)
  Receive Date: 20140115
  Receipt Date: 20140115
  Transmission Date: 20141002
  Serious: Yes (Hospitalization)
  Sender: FDA-Public Use
  Company Number: JP-BAYER-2013-140666

PATIENT
  Age: 63 Year
  Sex: Male
  Weight: 58.05 kg

DRUGS (2)
  1. STIVARGA [Suspect]
     Indication: RECTAL CANCER
     Dosage: 160 MG, QD
     Route: 048
     Dates: start: 20130913, end: 20130918
  2. HIRUDOID [Concomitant]
     Indication: DRUG TOXICITY PROPHYLAXIS
     Dosage: UNK
     Route: 061
     Dates: start: 20130912, end: 20130919

REACTIONS (1)
  - Hepatic function abnormal [Recovering/Resolving]
